FAERS Safety Report 9702307 (Version 1)
Quarter: 2013Q4

REPORT INFORMATION
  Report Type: Report from Study
  Country: ES (occurrence: ES)
  Receive Date: 20131121
  Receipt Date: 20131121
  Transmission Date: 20140711
  Serious: Yes (Hospitalization)
  Sender: FDA-Public Use
  Company Number: ES-SA-2013SA119476

PATIENT
  Age: 32 Year
  Sex: Male

DRUGS (5)
  1. CLOBAZAM [Suspect]
     Indication: LENNOX-GASTAUT SYNDROME
     Dosage: MAY 10 MG COMP REPATIDOS INTO 3 TOMAS D-A-C
     Route: 048
     Dates: start: 2012, end: 20130208
  2. RIFATER [Interacting]
     Indication: LENNOX-GASTAUT SYNDROME
     Route: 048
     Dates: start: 20130120
  3. ZONISAMIDE [Interacting]
     Indication: LENNOX-GASTAUT SYNDROME
     Route: 048
     Dates: start: 2012
  4. VALPROIC ACID [Interacting]
     Indication: LENNOX-GASTAUT SYNDROME
     Route: 048
     Dates: start: 2012
  5. LAMOTRIGINE [Interacting]
     Indication: LENNOX-GASTAUT SYNDROME
     Route: 048
     Dates: start: 2012

REACTIONS (3)
  - Somnolence [Recovered/Resolved]
  - Drug interaction [Unknown]
  - Decreased appetite [Recovered/Resolved]
